FAERS Safety Report 8602765-1 (Version None)
Quarter: 2012Q3

REPORT INFORMATION
  Report Type: 
  Country: None (occurrence: None)
  Receive Date: 20120817
  Receipt Date: 20120814
  Transmission Date: 20120928
  Serious: Yes (Life-Threatening)
  Sender: FDA-Public Use
  Company Number: US-JNJFOC-20120707606

PATIENT
  Sex: Male
  Weight: 78.47 kg

DRUGS (5)
  1. ENBREL [Concomitant]
     Dates: start: 20070501
  2. USTEKINUMAB [Suspect]
     Indication: PSORIASIS
     Route: 058
     Dates: start: 20100721, end: 20110629
  3. ENBREL [Concomitant]
     Dates: start: 20081201, end: 20100711
  4. ENBREL [Concomitant]
     Dates: start: 20110727, end: 20120628
  5. ENBREL [Concomitant]
     Indication: PSORIASIS
     Dates: start: 20080901

REACTIONS (1)
  - RECTAL CANCER [None]
